FAERS Safety Report 7784957-7 (Version None)
Quarter: 2011Q3

REPORT INFORMATION
  Report Type: 
  Country: None (occurrence: None)
  Receive Date: 20110928
  Receipt Date: 20110920
  Transmission Date: 20111222
  Serious: Yes (Other)
  Sender: FDA-Public Use
  Company Number: US-RB-032280-11

PATIENT
  Age: 47 Year
  Sex: Male

DRUGS (5)
  1. WELLBUTRIN [Concomitant]
     Indication: DEPRESSION
     Dosage: UNKNOWN DOSING DETAILS
     Route: 065
  2. SUBOXONE [Suspect]
     Indication: DRUG DEPENDENCE
     Route: 060
     Dates: start: 20100101, end: 20110101
  3. SUBOXONE [Suspect]
     Indication: DRUG DEPENDENCE
     Dosage: TAPERED TO 2 MG AND STOPPED
     Route: 060
     Dates: start: 20110101, end: 20110901
  4. CYMBALTA [Suspect]
     Indication: DEPRESSION
     Dosage: DOSING UNKNOWN, TREATMENT DURATION APPROXIMATELY 8 WEEKS
     Route: 048
     Dates: start: 20110501, end: 20110701
  5. SUBOXONE [Suspect]
     Route: 060
     Dates: start: 20110101, end: 20110101

REACTIONS (7)
  - HALLUCINATION, AUDITORY [None]
  - INSOMNIA [None]
  - DRUG WITHDRAWAL SYNDROME [None]
  - UNDERDOSE [None]
  - HALLUCINATION, VISUAL [None]
  - ABDOMINAL DISTENSION [None]
  - DEPRESSION [None]
